FAERS Safety Report 7033703-3 (Version None)
Quarter: 2010Q4

REPORT INFORMATION
  Report Type: 
  Country: None (occurrence: None)
  Receive Date: 20101007
  Receipt Date: 20100927
  Transmission Date: 20110411
  Serious: Yes (Death, Hospitalization, Other)
  Sender: FDA-Public Use
  Company Number: GB-GENENTECH-307397

PATIENT
  Age: 75 Year
  Sex: Female

DRUGS (8)
  1. RITUXIMAB [Suspect]
     Indication: RHEUMATOID ARTHRITIS
     Dosage: UNK
     Route: 065
     Dates: start: 20061130, end: 20061130
  2. RITUXIMAB [Suspect]
     Dosage: UNK
     Route: 065
     Dates: start: 20080422, end: 20080422
  3. RITUXIMAB [Suspect]
     Dosage: UNK
     Route: 065
     Dates: start: 20090727, end: 20090727
  4. METHOTREXATE [Concomitant]
     Indication: PRODUCT USED FOR UNKNOWN INDICATION
     Dosage: UNK
     Dates: start: 20030113, end: 20030414
  5. METHOTREXATE [Concomitant]
     Dosage: UNK
     Dates: start: 20060202, end: 20061024
  6. METHOTREXATE [Concomitant]
     Dosage: UNK
     Dates: start: 20080101
  7. ETANERCEPT [Concomitant]
     Indication: PRODUCT USED FOR UNKNOWN INDICATION
     Dosage: UNK
     Dates: start: 20050411, end: 20050721
  8. ETANERCEPT [Concomitant]
     Dosage: UNK
     Dates: start: 20060202, end: 20061024

REACTIONS (14)
  - ABSCESS [None]
  - APHASIA [None]
  - ARTHRALGIA [None]
  - CLOSTRIDIAL INFECTION [None]
  - CONFUSIONAL STATE [None]
  - DEATH [None]
  - DIVERTICULUM [None]
  - ESCHERICHIA BACTERAEMIA [None]
  - GASTROINTESTINAL INFLAMMATION [None]
  - HIATUS HERNIA [None]
  - INSOMNIA [None]
  - PSOAS ABSCESS [None]
  - PYREXIA [None]
  - SOFT TISSUE INFECTION [None]
